FAERS Safety Report 9499495 (Version 1)
Quarter: 2013Q1

REPORT INFORMATION
  Report Type: Spontaneous
  Country: US (occurrence: None)
  Receive Date: 20130107
  Receipt Date: 20130107
  Transmission Date: 20140127
  Serious: No
  Sender: FDA-Public Use
  Company Number: PHEH2012US020195

PATIENT
  Sex: Female
  Weight: 108.8 kg

DRUGS (1)
  1. GILENYA [Suspect]
     Indication: MULTIPLE SCLEROSIS
     Route: 048
     Dates: start: 201111

REACTIONS (4)
  - Memory impairment [None]
  - Cognitive disorder [None]
  - Herpes zoster [None]
  - White blood cell count decreased [None]
